FAERS Safety Report 20711988 (Version 2)
Quarter: 2022Q2

REPORT INFORMATION
  Report Type: Spontaneous
  Country: US (occurrence: US)
  Receive Date: 20220414
  Receipt Date: 20220606
  Transmission Date: 20220721
  Serious: Yes (Other)
  Sender: FDA-Public Use
  Company Number: US-BIOGEN-2022BI01112665

PATIENT
  Sex: Female

DRUGS (16)
  1. TYSABRI [Suspect]
     Active Substance: NATALIZUMAB
     Indication: Multiple sclerosis
     Route: 065
     Dates: start: 20211015, end: 20220307
  2. TYSABRI [Suspect]
     Active Substance: NATALIZUMAB
     Route: 065
     Dates: start: 20220408
  3. TYSABRI [Suspect]
     Active Substance: NATALIZUMAB
     Route: 042
  4. AVONEX [Suspect]
     Active Substance: INTERFERON BETA-1A
     Indication: Multiple sclerosis
     Route: 065
  5. AVONEX [Suspect]
     Active Substance: INTERFERON BETA-1A
  6. AVONEX [Suspect]
     Active Substance: INTERFERON BETA-1A
  7. AVONEX [Suspect]
     Active Substance: INTERFERON BETA-1A
  8. AVONEX [Suspect]
     Active Substance: INTERFERON BETA-1A
  9. AVONEX [Suspect]
     Active Substance: INTERFERON BETA-1A
  10. AVONEX [Suspect]
     Active Substance: INTERFERON BETA-1A
  11. AVONEX [Suspect]
     Active Substance: INTERFERON BETA-1A
  12. AVONEX [Suspect]
     Active Substance: INTERFERON BETA-1A
  13. AVONEX [Suspect]
     Active Substance: INTERFERON BETA-1A
  14. AVONEX [Suspect]
     Active Substance: INTERFERON BETA-1A
  15. AVONEX [Suspect]
     Active Substance: INTERFERON BETA-1A
  16. AVONEX [Suspect]
     Active Substance: INTERFERON BETA-1A

REACTIONS (18)
  - Heat stroke [Unknown]
  - Major depression [Unknown]
  - Pain [Unknown]
  - Aphasia [Unknown]
  - Cerebral disorder [Unknown]
  - Multiple sclerosis [Unknown]
  - Sunburn [Unknown]
  - Memory impairment [Unknown]
  - Stress [Unknown]
  - Dysgraphia [Unknown]
  - Multiple sclerosis relapse [Unknown]
  - Melanocytic naevus [Unknown]
  - Thinking abnormal [Unknown]
  - Anxiety [Unknown]
  - Urinary tract infection [Unknown]
  - Heat exhaustion [Unknown]
  - Insomnia [Unknown]
  - Weight decreased [Unknown]
